FAERS Safety Report 7109810-3 (Version None)
Quarter: 2010Q4

REPORT INFORMATION
  Report Type: 
  Country: None (occurrence: None)
  Receive Date: 20101116
  Receipt Date: 20101116
  Transmission Date: 20110411
  Serious: Yes (Other)
  Sender: FDA-Public Use
  Company Number: None

PATIENT
  Age: 54 Year
  Sex: Female
  Weight: 87.0906 kg

DRUGS (1)
  1. VERAPAMIL SR 120 MG DISCARD AFTER 9/11 IVAX NDC 00172428560 [Suspect]
     Indication: HYPERTENSION
     Dosage: ONE TABLET DAILY BY MOUTH
     Route: 048
     Dates: start: 20101012

REACTIONS (3)
  - ABDOMINAL PAIN UPPER [None]
  - FAECES PALE [None]
  - NAUSEA [None]
